FAERS Safety Report 10028145 (Version 2)
Quarter: 2014Q2

REPORT INFORMATION
  Report Type: Spontaneous
  Country: US (occurrence: US)
  Receive Date: 20140321
  Receipt Date: 20140417
  Transmission Date: 20141212
  Serious: Yes (Other)
  Sender: FDA-Public Use
  Company Number: US-BEH-2014041116

PATIENT
  Age: 72 Year
  Sex: Female

DRUGS (4)
  1. HIZENTRA [Suspect]
     Indication: ACQUIRED IMMUNODEFICIENCY SYNDROME
     Dosage: 4 SITES OVER APPROXIMATELY 2 HOURS
     Route: 058
     Dates: start: 20140303, end: 20140307
  2. TYLENOL [Concomitant]
     Indication: ARTHRITIS
  3. TYLENOL [Concomitant]
     Indication: PREMEDICATION
  4. INSULIN [Concomitant]
     Indication: DIABETES MELLITUS

REACTIONS (9)
  - Headache [Recovered/Resolved]
  - Infusion site erythema [Recovered/Resolved]
  - Infusion site pruritus [Recovered/Resolved]
  - Infusion site swelling [Recovered/Resolved]
  - Wrong technique in drug usage process [Recovered/Resolved]
  - Nausea [Recovered/Resolved]
  - Abdominal discomfort [Recovered/Resolved]
  - Fatigue [Recovered/Resolved]
  - Headache [Recovered/Resolved]
